FAERS Safety Report 24667044 (Version 1)
Quarter: 2024Q4

REPORT INFORMATION
  Report Type: Spontaneous
  Country: ES (occurrence: ES)
  Receive Date: 20241126
  Receipt Date: 20241126
  Transmission Date: 20250115
  Serious: Yes (Other)
  Sender: TEVA
  Company Number: None

PATIENT
  Age: 67 Year
  Sex: Female

DRUGS (1)
  1. ENALAPRIL [Suspect]
     Active Substance: ENALAPRIL
     Indication: Hypertension
     Dosage: ENALAPRIL TEVA-RATIOPHARM EFG, 28 TABLETS
     Route: 048
     Dates: start: 20241002, end: 20241003

REACTIONS (4)
  - Depressed level of consciousness [Recovered/Resolved]
  - Chills [Recovered/Resolved]
  - Limb discomfort [Recovered/Resolved]
  - Malaise [Recovered/Resolved]

NARRATIVE: CASE EVENT DATE: 20241002
